FAERS Safety Report 18657286 (Version 1)
Quarter: 2020Q4

REPORT INFORMATION
  Report Type: Other
  Country: US (occurrence: US)
  Receive Date: 20201224
  Receipt Date: 20201224
  Transmission Date: 20210114
  Serious: Yes (Other)
  Sender: FDA-Public Use
  Company Number: US-ROCHE-2735158

PATIENT

DRUGS (5)
  1. SODIUM CHLORIDE. [Concomitant]
     Active Substance: SODIUM CHLORIDE
  2. BENADRYL [Concomitant]
     Active Substance: DIPHENHYDRAMINE HYDROCHLORIDE
  3. SOLU-MEDROL [Concomitant]
     Active Substance: METHYLPREDNISOLONE SODIUM SUCCINATE
  4. OCREVUS [Suspect]
     Active Substance: OCRELIZUMAB
     Indication: MULTIPLE SCLEROSIS
     Dosage: ONGOING: NO?300 MG/10 ML
     Route: 065
     Dates: end: 20200924
  5. TYLENOL [Concomitant]
     Active Substance: ACETAMINOPHEN

REACTIONS (7)
  - Peroneal nerve palsy [Unknown]
  - Hypertension [Unknown]
  - Type V hyperlipidaemia [Unknown]
  - Deep vein thrombosis [Unknown]
  - Type 2 diabetes mellitus [Unknown]
  - Sleep apnoea syndrome [Unknown]
  - Monoparesis [Unknown]
